FAERS Safety Report 10154435 (Version 3)
Quarter: 2014Q2

REPORT INFORMATION
  Report Type: Spontaneous
  Country: JP (occurrence: None)
  Receive Date: 20140502
  Receipt Date: 20140611
  Transmission Date: 20141212
  Serious: Yes (Other)
  Sender: FDA-Public Use
  Company Number: AE-SPE-2014-015

PATIENT
  Age: 2 Year
  Sex: Female

DRUGS (3)
  1. MEIACT MS FINE GRANULES (CEFDITOREN PIVOXIL) [Suspect]
     Indication: OTITIS MEDIA
     Dosage: 0.4 (UNIT UNK) X 3, P.O.?
     Route: 048
     Dates: start: 20140304, end: 20140307
  2. FLOMOX [Suspect]
     Dosage: 0.4 (UNIT UNK) X 3, P.O.
     Route: 048
     Dates: start: 20140414, end: 20140417
  3. CEFPODOXIME PROXETIL [Concomitant]

REACTIONS (6)
  - Hypocarnitinaemia [None]
  - Hypoglycaemia [None]
  - Blood creatinine decreased [None]
  - Hypoglycaemic seizure [None]
  - Otitis media [None]
  - Condition aggravated [None]
